FAERS Safety Report 7581894-8 (Version None)
Quarter: 2011Q2

REPORT INFORMATION
  Report Type: 
  Country: None (occurrence: None)
  Receive Date: 20110629
  Receipt Date: 20101229
  Transmission Date: 20111010
  Serious: Yes (Hospitalization)
  Sender: FDA-Public Use
  Company Number: PHHY2010TW89153

PATIENT

DRUGS (1)
  1. EXJADE [Suspect]
     Indication: THALASSAEMIA BETA
     Dosage: 45.91 MG / DAY
     Route: 048
     Dates: start: 20090820

REACTIONS (9)
  - DECREASED APPETITE [None]
  - PYREXIA [None]
  - COUGH [None]
  - DYSURIA [None]
  - HAEMATURIA [None]
  - URINARY TRACT INFECTION [None]
  - POLLAKIURIA [None]
  - MALAISE [None]
  - PRODUCTIVE COUGH [None]
